FAERS Safety Report 7502298-X (Version None)
Quarter: 2011Q2

REPORT INFORMATION
  Report Type: 
  Country: None (occurrence: None)
  Receive Date: 20110525
  Receipt Date: 20110515
  Transmission Date: 20111010
  Serious: Yes (Life-Threatening, Hospitalization)
  Sender: FDA-Public Use
  Company Number: GR-SANOFI-AVENTIS-2011SA030347

PATIENT
  Sex: Female

DRUGS (2)
  1. BETA BLOCKING AGENTS [Concomitant]
     Indication: ATRIAL FIBRILLATION
  2. MULTAQ [Suspect]
     Indication: ATRIAL FIBRILLATION
     Route: 048
     Dates: start: 20110101, end: 20110301

REACTIONS (1)
  - ATRIAL TACHYCARDIA [None]
